FAERS Safety Report 5632285-8 (Version None)
Quarter: 2008Q1

REPORT INFORMATION
  Report Type: 
  Country: None (occurrence: None)
  Receive Date: 20080220
  Receipt Date: 20080214
  Transmission Date: 20080703
  Serious: Yes (Death, Life-Threatening, Hospitalization)
  Sender: FDA-Public Use
  Company Number: PHNU2008DE00977

PATIENT
  Age: 67 Year
  Sex: Male

DRUGS (5)
  1. ALLOPURINOL [Suspect]
     Dosage: 1 DF, QD
     Route: 048
     Dates: start: 20040801
  2. TOREM [Suspect]
     Indication: OEDEMA
     Dosage: 1 DF, QD
     Dates: start: 20040927
  3. AMOXICILLIN [Suspect]
     Dosage: 1 DF, TID
     Dates: start: 20041012
  4. CAPTOHEXAL [Concomitant]
     Route: 048
  5. DIOVAN [Suspect]
     Indication: HYPERTENSION
     Dosage: 0.5 DF, QD
     Route: 048
     Dates: start: 20041006

REACTIONS (12)
  - BLISTER [None]
  - CONJUNCTIVITIS [None]
  - DERMATITIS EXFOLIATIVE [None]
  - GENITAL EROSION [None]
  - ORAL MUCOSA EROSION [None]
  - PHARYNGITIS [None]
  - PURULENCE [None]
  - RASH [None]
  - RASH MACULAR [None]
  - STEVENS-JOHNSON SYNDROME [None]
  - TONSILLITIS [None]
  - TOXIC EPIDERMAL NECROLYSIS [None]
